FAERS Safety Report 4651968-X (Version None)
Quarter: 2005Q2

REPORT INFORMATION
  Report Type: 
  Country: None (occurrence: None)
  Receive Date: 20050502
  Receipt Date: 20050415
  Transmission Date: 20051028
  Serious: Yes (Hospitalization, Other)
  Sender: FDA-Public Use
  Company Number: 205914

PATIENT
  Age: 54 Year
  Sex: Female

DRUGS (20)
  1. AVONEX [Suspect]
     Indication: MULTIPLE SCLEROSIS
     Dosage: 30 UG; QW; IM
     Route: 030
     Dates: start: 20020315
  2. AVONEX [Suspect]
     Indication: MULTIPLE SCLEROSIS
     Dosage: 30 UG; QW; IM
     Route: 030
  3. AVONEX [Suspect]
     Indication: MULTIPLE SCLEROSIS
     Dosage: 30 UG; QW; IM
     Route: 030
  4. NEURONTIN [Concomitant]
  5. ELAVIL [Concomitant]
  6. TYLENOL (CAPLET) [Concomitant]
  7. VICODIN [Concomitant]
  8. SOMA [Concomitant]
  9. PHENERGAN [Concomitant]
  10. ZOLOFT [Concomitant]
  11. AMANTADINE HCL [Concomitant]
  12. PRAVACHOL [Concomitant]
  13. ZETIA [Concomitant]
  14. FOLATE [Concomitant]
  15. M.V.I. [Concomitant]
  16. ASPIRIN [Concomitant]
  17. MAVIK [Concomitant]
  18. LASIX [Concomitant]
  19. COREG [Concomitant]
  20. TRICOR [Concomitant]

REACTIONS (5)
  - CEREBRAL ISCHAEMIA [None]
  - INFLUENZA LIKE ILLNESS [None]
  - KIDNEY INFECTION [None]
  - NAUSEA [None]
  - URINARY TRACT INFECTION [None]
